FAERS Safety Report 6829512-8 (Version None)
Quarter: 2010Q3

REPORT INFORMATION
  Report Type: 
  Country: None (occurrence: None)
  Receive Date: 20100709
  Receipt Date: 20070323
  Transmission Date: 20110219
  Serious: No
  Sender: FDA-Public Use
  Company Number: US-PFIZER INC-2007010277

PATIENT
  Sex: Female
  Weight: 142.43 kg

DRUGS (5)
  1. CHANTIX [Suspect]
     Indication: SMOKING CESSATION THERAPY
     Dates: start: 20070126
  2. LEXAPRO [Suspect]
     Indication: ANXIETY
     Dates: start: 20061017
  3. LEXAPRO [Suspect]
     Indication: ANXIETY DISORDER
  4. ADVAIR DISKUS 100/50 [Concomitant]
     Route: 055
  5. ALBUTEROL [Concomitant]
     Route: 055

REACTIONS (1)
  - BLOOD PRESSURE INCREASED [None]
